FAERS Safety Report 8573960-5 (Version None)
Quarter: 2012Q3

REPORT INFORMATION
  Report Type: 
  Country: None (occurrence: None)
  Receive Date: 20120806
  Receipt Date: 20120723
  Transmission Date: 20120928
  Serious: No
  Sender: FDA-Public Use
  Company Number: US-009507513-1207USA011322

PATIENT

DRUGS (9)
  1. ZOCOR [Suspect]
     Dosage: 20 MG, QD
  2. TESTOSTERONE [Suspect]
     Dosage: 10 G, QD
     Route: 062
  3. OXYCODONE HCL [Concomitant]
     Dosage: 30 MG, QD
  4. TESTOSTERONE [Suspect]
     Dosage: 5 G, QD
     Route: 062
  5. ASPIRIN [Concomitant]
     Dosage: 81 MG, QD
  6. HYDROCHLOROTHIAZIDE (+) LOSARTAN POTASSIUM [Suspect]
     Dosage: 100 MG, QD
  7. GLUCOSAMINE [Concomitant]
  8. ZOLPIDEM TARTRATE [Concomitant]
     Dosage: 10 MG, QD
  9. CELECOXIB [Concomitant]
     Dosage: 20 MG, QD

REACTIONS (4)
  - HEART RATE INCREASED [None]
  - BLOOD PRESSURE INCREASED [None]
  - HEADACHE [None]
  - BLOOD TESTOSTERONE DECREASED [None]
